FAERS Safety Report 18612227 (Version 1)
Quarter: 2020Q4

REPORT INFORMATION
  Report Type: Report from Study
  Country: None (occurrence: GB)
  Receive Date: 20201214
  Receipt Date: 20201214
  Transmission Date: 20210114
  Serious: Yes (Hospitalization)
  Sender: FDA-Public Use
  Company Number: GB-ABBVIE-20K-167-3683212-00

PATIENT
  Age: 15 Year
  Sex: Male
  Weight: 111.5 kg

DRUGS (10)
  1. HUMIRA [Suspect]
     Active Substance: ADALIMUMAB
     Route: 058
     Dates: start: 20180313, end: 20180903
  2. HUMIRA [Suspect]
     Active Substance: ADALIMUMAB
     Dosage: 80MG / 40MG ALTERNATE WEEKS
     Route: 058
     Dates: start: 20180903, end: 20190727
  3. HUMIRA [Suspect]
     Active Substance: ADALIMUMAB
     Indication: CROHN^S DISEASE
     Route: 058
     Dates: start: 20161118, end: 20180313
  4. AZATHIOPRINE. [Suspect]
     Active Substance: AZATHIOPRINE
     Indication: CROHN^S DISEASE
     Route: 048
     Dates: start: 20140206, end: 20160520
  5. AZATHIOPRINE. [Suspect]
     Active Substance: AZATHIOPRINE
     Route: 048
     Dates: start: 20161018, end: 20190430
  6. AZATHIOPRINE. [Suspect]
     Active Substance: AZATHIOPRINE
     Route: 048
     Dates: start: 20190430
  7. AMGEVITA [Concomitant]
     Active Substance: ADALIMUMAB
     Indication: CROHN^S DISEASE
     Route: 058
     Dates: start: 20190727
  8. PROPRANOLOL HYDROCHLORIDE. [Concomitant]
     Active Substance: PROPRANOLOL HYDROCHLORIDE
     Indication: DEPRESSED MOOD
     Route: 048
     Dates: start: 20190829
  9. PROPRANOLOL HYDROCHLORIDE. [Concomitant]
     Active Substance: PROPRANOLOL HYDROCHLORIDE
     Indication: ANXIETY
  10. OMEPRAZOLE. [Concomitant]
     Active Substance: OMEPRAZOLE
     Indication: CROHN^S DISEASE
     Route: 048
     Dates: start: 20200706

REACTIONS (1)
  - Gastrointestinal stoma output decreased [Recovered/Resolved]

NARRATIVE: CASE EVENT DATE: 20191006
